FAERS Safety Report 9953454 (Version 1)
Quarter: 2014Q1

REPORT INFORMATION
  Report Type: Report from Study
  Country: US (occurrence: US)
  Receive Date: 20140304
  Receipt Date: 20140304
  Transmission Date: 20141002
  Serious: No
  Sender: FDA-Public Use
  Company Number: US-ABBVIE-13P-163-1074741-00

PATIENT
  Age: 33 Year
  Sex: Female

DRUGS (2)
  1. HUMIRA [Suspect]
     Dosage: LOADING
     Dates: start: 20130321, end: 20130321
  2. HUMIRA [Suspect]
     Dates: start: 20130328

REACTIONS (2)
  - Injection site pain [Recovering/Resolving]
  - Injection site bruising [Unknown]
